FAERS Safety Report 15725600 (Version 2)
Quarter: 2019Q3

REPORT INFORMATION
  Report Type: Spontaneous
  Country: GB (occurrence: GB)
  Receive Date: 20181215
  Receipt Date: 20190817
  Transmission Date: 20191004
  Serious: Yes (Congenital Anomaly)
  Sender: FDA-Public Use
  Company Number: GB-TEVA-2018-GB-986612

PATIENT
  Sex: Female

DRUGS (4)
  1. VITAMINS NOS [Concomitant]
     Active Substance: VITAMINS
     Dosage: STOPPED AT 37 WEEKS GESTATION.
     Route: 064
  2. FOLIC ACID. [Concomitant]
     Active Substance: FOLIC ACID
     Dosage: STOPPED AT 37 WEEKS GESTATION.
     Route: 064
  3. ARIPIPRAZOLE. [Suspect]
     Active Substance: ARIPIPRAZOLE
     Indication: BIPOLAR I DISORDER
     Dosage: 15 MILLIGRAM DAILY;
     Route: 064
  4. FERROUS FUMARATE [Concomitant]
     Active Substance: FERROUS FUMARATE
     Route: 064

REACTIONS (2)
  - Foetal exposure during pregnancy [Unknown]
  - Ventricular septal defect [Recovered/Resolved]
